FAERS Safety Report 8256898-2 (Version None)
Quarter: 2012Q1

REPORT INFORMATION
  Report Type: 
  Country: None (occurrence: None)
  Receive Date: 20120330
  Receipt Date: 20120330
  Transmission Date: 20120608
  Serious: Yes (Other)
  Sender: FDA-Public Use
  Company Number: None

PATIENT
  Age: 56 Year
  Sex: Female

DRUGS (1)
  1. ISOSULFAN BLUE [Suspect]
     Dosage: SUBAREOLAR SPACE

REACTIONS (1)
  - LABORATORY TEST INTERFERENCE [None]
